FAERS Safety Report 9355454 (Version 2)
Quarter: 2013Q2

REPORT INFORMATION
  Report Type: Spontaneous
  Country: GB (occurrence: GB)
  Receive Date: 20130619
  Receipt Date: 20130628
  Transmission Date: 20140414
  Serious: Yes (Disabling, Other)
  Sender: FDA-Public Use
  Company Number: GB-PFIZER INC-2013181990

PATIENT
  Age: 71 Year
  Sex: Male
  Weight: 59 kg

DRUGS (7)
  1. SUTENT [Suspect]
     Indication: METASTATIC RENAL CELL CARCINOMA
     Dosage: 50 MG, ONCE DAILY
     Route: 048
     Dates: start: 201101, end: 201111
  2. IRBESARTAN [Concomitant]
     Dosage: 300 MG (UNIT DOSE)
     Route: 048
     Dates: start: 2009
  3. DOXAZOSIN [Concomitant]
     Dosage: UNK
     Dates: start: 2010
  4. ALLOPURINOL [Concomitant]
     Dosage: UNK
     Dates: start: 1980
  5. THYROXINE [Concomitant]
  6. OMEPRAZOLE [Concomitant]
     Dosage: 20 MG (UNIT DOSE)
  7. DIGOXIN [Concomitant]
     Dosage: UNK
     Dates: start: 201304

REACTIONS (4)
  - Deafness [Not Recovered/Not Resolved]
  - Palmar-plantar erythrodysaesthesia syndrome [Recovered/Resolved]
  - Dysphonia [Unknown]
  - Thyroid disorder [Not Recovered/Not Resolved]
